FAERS Safety Report 8391301-3 (Version None)
Quarter: 2012Q2

REPORT INFORMATION
  Report Type: 
  Country: None (occurrence: None)
  Receive Date: 20120529
  Receipt Date: 20110906
  Transmission Date: 20120825
  Serious: No
  Sender: FDA-Public Use
  Company Number: US-ABBOTT-11P-163-0852642-00

PATIENT
  Age: 94 Year
  Sex: Female
  Weight: 57.658 kg

DRUGS (2)
  1. UNKNOWN MEDICATIONS [Concomitant]
     Indication: PRODUCT USED FOR UNKNOWN INDICATION
  2. ZEMPLAR [Suspect]
     Indication: RENAL DISORDER
     Route: 048

REACTIONS (1)
  - DYSPHONIA [None]
